FAERS Safety Report 4609130-2 (Version None)
Quarter: 2005Q1

REPORT INFORMATION
  Report Type: 
  Country: None (occurrence: None)
  Receive Date: 20050311
  Receipt Date: 20050301
  Transmission Date: 20050727
  Serious: Yes (Hospitalization, Disabling)
  Sender: FDA-Public Use
  Company Number: 2005-03-0265

PATIENT
  Age: 59 Year
  Sex: Male

DRUGS (7)
  1. PEG-INTRON [Suspect]
     Indication: HEPATITIS C
     Dosage: SUBCUTANEOUS
     Route: 058
     Dates: start: 20040618, end: 20050101
  2. RIBASPHERE [Suspect]
     Indication: HEPATITIS C
     Dosage: 1200 MG QD
     Dates: start: 20040618
  3. LANTUS [Concomitant]
  4. AVINZA [Concomitant]
  5. COLACE [Concomitant]
  6. DARVON [Concomitant]
  7. LISINOPRIL [Concomitant]

REACTIONS (5)
  - CONDITION AGGRAVATED [None]
  - DIABETES MELLITUS [None]
  - INCOHERENT [None]
  - INTERVERTEBRAL DISC PROTRUSION [None]
  - LIVER DISORDER [None]
